FAERS Safety Report 16429282 (Version 1)
Quarter: 2019Q2

REPORT INFORMATION
  Report Type: Spontaneous
  Country: DE (occurrence: DE)
  Receive Date: 20190614
  Receipt Date: 20190614
  Transmission Date: 20190711
  Serious: Yes (Other)
  Sender: FDA-Public Use
  Company Number: DE-AUROBINDO-AUR-APL-2019-032812

PATIENT

DRUGS (2)
  1. OXALIPLATIN. [Suspect]
     Active Substance: OXALIPLATIN
     Indication: PANCREATIC CARCINOMA
     Dosage: UNK, 120 MILLIGRAM
     Route: 065
     Dates: start: 20170731, end: 20190121
  2. ABRAXANE [Suspect]
     Active Substance: PACLITAXEL
     Indication: PANCREATIC CARCINOMA
     Dosage: 220 MILLIGRAM, ONCE A DAY
     Route: 041
     Dates: start: 20190204, end: 20190429

REACTIONS (1)
  - Toxic neuropathy [Not Recovered/Not Resolved]

NARRATIVE: CASE EVENT DATE: 20190506
